FAERS Safety Report 9894393 (Version 2)
Quarter: 2014Q3

REPORT INFORMATION
  Report Type: Spontaneous
  Country: US (occurrence: US)
  Receive Date: 20140213
  Receipt Date: 20140812
  Transmission Date: 20150326
  Serious: Yes (Hospitalization, Other)
  Sender: FDA-Public Use
  Company Number: US-009507513-1402USA005774

PATIENT
  Sex: Female
  Weight: 71.2 kg

DRUGS (6)
  1. NUVARING [Suspect]
     Active Substance: ETHINYL ESTRADIOL\ETONOGESTREL
     Dosage: 0.12-0.015 MG/24 HR
     Route: 067
     Dates: end: 20070914
  2. ASMANEX [Concomitant]
     Active Substance: MOMETASONE FUROATE
     Dosage: 220 MICROGRAM, 2 PUFFS QD
     Route: 055
  3. SINGULAIR [Concomitant]
     Active Substance: MONTELUKAST SODIUM
     Dosage: 10 MG, QD
     Route: 048
  4. FEXOFENADINE HYDROCHLORIDE. [Concomitant]
     Active Substance: FEXOFENADINE HYDROCHLORIDE
     Indication: HYPERSENSITIVITY
     Dosage: 120-180 MG, QD
     Route: 048
  5. NAPROXEN. [Concomitant]
     Active Substance: NAPROXEN
     Dosage: 1 DF, BID
     Route: 048
  6. RHINOCORT AQUA [Concomitant]
     Active Substance: BUDESONIDE
     Dosage: 32 MICROGRAM, 2 SPRAYS EACH NOSTRIL, QD
     Route: 045

REACTIONS (17)
  - Melaena [Unknown]
  - Hypertension [Unknown]
  - Venous thrombosis limb [Unknown]
  - Prinzmetal angina [Unknown]
  - Arteriospasm coronary [Unknown]
  - Anxiety disorder [Unknown]
  - Acute myocardial infarction [Unknown]
  - Pulmonary embolism [Unknown]
  - Embolism venous [Unknown]
  - Deep vein thrombosis [Unknown]
  - Coronary artery disease [Unknown]
  - Chest pain [Unknown]
  - Embolism venous [Unknown]
  - Pulmonary embolism [Unknown]
  - Gastritis [Unknown]
  - Hyperlipidaemia [Unknown]
  - Chest pain [Unknown]

NARRATIVE: CASE EVENT DATE: 20070801
